FAERS Safety Report 23738171 (Version 1)
Quarter: 2024Q2

REPORT INFORMATION
  Report Type: Spontaneous
  Country: ZA (occurrence: None)
  Receive Date: 20240412
  Receipt Date: 20240412
  Transmission Date: 20240716
  Serious: Yes (Other)
  Sender: FDA-Public Use
  Company Number: 2024A084087

PATIENT
  Age: 49 Year
  Sex: Female

DRUGS (5)
  1. BUDESONIDE\FORMOTEROL [Suspect]
     Active Substance: BUDESONIDE\FORMOTEROL
     Indication: Asthma
     Dosage: 120 DOSE, 160 UG, FREQUENCY UNKNOWN UNKNOWN
     Route: 055
  2. WARFARIN [Concomitant]
     Active Substance: WARFARIN
     Indication: Anticoagulant therapy
     Route: 048
  3. NEOLORIDIN [Concomitant]
     Indication: Hypersensitivity
     Route: 048
  4. METFORMIN [Concomitant]
     Active Substance: METFORMIN HYDROCHLORIDE
     Indication: Diabetes mellitus
     Route: 048
  5. TOPRAZ [Concomitant]
     Indication: Asthma
     Route: 048

REACTIONS (2)
  - Pulmonary embolism [Unknown]
  - Off label use [Unknown]
